FAERS Safety Report 15065268 (Version 1)
Quarter: 2018Q2

REPORT INFORMATION
  Report Type: Spontaneous
  Country: FR (occurrence: FR)
  Receive Date: 20180626
  Receipt Date: 20180626
  Transmission Date: 20180711
  Serious: Yes (Hospitalization)
  Sender: FDA-Public Use
  Company Number: FR-009507513-1806FRA009643

PATIENT
  Age: 76 Year
  Sex: Male
  Weight: 60.8 kg

DRUGS (6)
  1. ARANESP [Concomitant]
     Active Substance: DARBEPOETIN ALFA
     Dosage: 1 DF, QW
     Route: 003
     Dates: start: 201801
  2. EUPRESSYL [Concomitant]
     Active Substance: URAPIDIL
     Dosage: 1 DF, QD
     Route: 048
  3. LASILIX [Concomitant]
     Active Substance: FUROSEMIDE
     Dosage: 2 DF, QD
     Route: 048
     Dates: start: 20180404, end: 20180409
  4. IMIPENEM AND CILASTATIN [Suspect]
     Active Substance: CILASTATIN SODIUM\IMIPENEM
     Indication: BRONCHITIS
     Dosage: 3 DF, QD
     Route: 042
     Dates: start: 20180301, end: 20180312
  5. CIFLOX (CIPROFLOXACIN HYDROCHLORIDE) [Suspect]
     Active Substance: CIPROFLOXACIN HYDROCHLORIDE
     Indication: BRONCHITIS
     Dosage: 1 DF, QD
     Route: 048
     Dates: start: 20180302, end: 20180312
  6. PANTOPRAZOLE [Concomitant]
     Active Substance: PANTOPRAZOLE
     Dosage: 40 MG, QD
     Route: 048
     Dates: start: 20180211

REACTIONS (1)
  - Drug reaction with eosinophilia and systemic symptoms [Recovering/Resolving]

NARRATIVE: CASE EVENT DATE: 20180409
